FAERS Safety Report 12551231 (Version 3)
Quarter: 2017Q1

REPORT INFORMATION
  Report Type: Report from Study
  Country: BE (occurrence: BE)
  Receive Date: 20160713
  Receipt Date: 20170207
  Transmission Date: 20170428
  Serious: Yes (Hospitalization)
  Sender: FDA-Public Use
  Company Number: BE-ROCHE-1601323

PATIENT
  Age: 79 Year
  Sex: Male
  Weight: 67 kg

DRUGS (34)
  1. PIRFENIDONE [Suspect]
     Active Substance: PIRFENIDONE
     Dosage: 3 CAPS A DAY
     Route: 048
     Dates: start: 20150331, end: 20150428
  2. PIRFENIDONE [Suspect]
     Active Substance: PIRFENIDONE
     Dosage: 4 CAPS A DAY
     Route: 048
     Dates: start: 20150428, end: 20150501
  3. ASAFLOW [Concomitant]
     Active Substance: ASPIRIN
     Route: 065
  4. AUGMENTIN [Concomitant]
     Active Substance: AMOXICILLIN\CLAVULANATE POTASSIUM
  5. RANITIDINE. [Concomitant]
     Active Substance: RANITIDINE
     Route: 065
     Dates: start: 20150519, end: 20150602
  6. PIRFENIDONE [Suspect]
     Active Substance: PIRFENIDONE
     Dosage: 9 CAPS A DAY
     Route: 048
     Dates: start: 20150705, end: 20160216
  7. AMLOR [Concomitant]
     Active Substance: AMLODIPINE BESYLATE
     Route: 065
  8. VALACICLOVIR [Concomitant]
     Active Substance: VALACYCLOVIR HYDROCHLORIDE
  9. NILSTAT DROPS [Concomitant]
  10. PIRFENIDONE [Suspect]
     Active Substance: PIRFENIDONE
     Dosage: 6 CAPS A DAY
     Route: 048
     Dates: start: 20150501, end: 20150507
  11. PIRFENIDONE [Suspect]
     Active Substance: PIRFENIDONE
     Dosage: 9 CAPS A DAY
     Route: 048
     Dates: start: 20150512, end: 20150602
  12. LEVOCETIRIZINE [Concomitant]
     Active Substance: LEVOCETIRIZINE
     Route: 065
  13. D-CURE [Concomitant]
     Dosage: 1 EVERY 2 WEEKS
     Route: 065
  14. LYRICA [Concomitant]
     Active Substance: PREGABALIN
  15. VERSATIS [Concomitant]
     Active Substance: LIDOCAINE
     Dosage: 5 %
     Route: 065
  16. PIRFENIDONE [Suspect]
     Active Substance: PIRFENIDONE
     Indication: IDIOPATHIC PULMONARY FIBROSIS
     Dosage: 9 CAPS A DAY
     Route: 048
     Dates: start: 20150304, end: 20150331
  17. PIRFENIDONE [Suspect]
     Active Substance: PIRFENIDONE
     Dosage: 6 CAPS A DAY
     Route: 048
     Dates: start: 20160216
  18. TOTALIP [Concomitant]
     Active Substance: ATORVASTATIN
     Dosage: FINISHED
     Route: 065
  19. ATARAX [Concomitant]
     Active Substance: HYDROXYZINE HYDROCHLORIDE
     Route: 065
  20. CETAVLEX (BELGIUM) [Concomitant]
  21. COVERSYL [Concomitant]
     Active Substance: PERINDOPRIL
  22. AERIUS (BELGIUM) [Concomitant]
  23. RANITIDINE. [Concomitant]
     Active Substance: RANITIDINE
     Route: 065
     Dates: start: 20150602
  24. PIRFENIDONE [Suspect]
     Active Substance: PIRFENIDONE
     Dosage: 3 CAPS A DAY
     Route: 048
     Dates: start: 20150602, end: 20150622
  25. PIRFENIDONE [Suspect]
     Active Substance: PIRFENIDONE
     Dosage: 6 CAPS A DAY
     Route: 048
     Dates: start: 20150629, end: 20150705
  26. PIRFENIDONE [Suspect]
     Active Substance: PIRFENIDONE
     Dosage: 9 CAPS A DAY
     Route: 048
     Dates: start: 20150302, end: 20150303
  27. PANTOMED (BELGIUM) [Concomitant]
     Route: 065
  28. PIRFENIDONE [Suspect]
     Active Substance: PIRFENIDONE
     Dosage: 9 CAPS A DAY
     Route: 048
     Dates: start: 20150507, end: 20150512
  29. PIRFENIDONE [Suspect]
     Active Substance: PIRFENIDONE
     Dosage: 4 CAPS A DAY
     Route: 048
     Dates: start: 20150622, end: 20150629
  30. LIPITOR [Concomitant]
     Active Substance: ATORVASTATIN CALCIUM
     Route: 065
  31. L-THYROXINE [Concomitant]
     Active Substance: LEVOTHYROXINE
     Route: 065
  32. SELOZOK [Concomitant]
     Active Substance: METOPROLOL SUCCINATE
     Route: 065
  33. CONTRAMAL [Concomitant]
     Active Substance: TRAMADOL HYDROCHLORIDE
  34. SINEQUAN [Concomitant]
     Active Substance: DOXEPIN HYDROCHLORIDE

REACTIONS (11)
  - Body temperature decreased [Recovered/Resolved]
  - Cachexia [Recovered/Resolved]
  - Decreased appetite [Recovered/Resolved]
  - Vomiting [Recovered/Resolved]
  - Diarrhoea [Recovered/Resolved]
  - Pruritus [Recovered/Resolved]
  - Dyspnoea [Unknown]
  - Cough [Unknown]
  - C-reactive protein increased [Unknown]
  - Blood pressure increased [Recovered/Resolved]
  - Oxygen saturation decreased [Unknown]

NARRATIVE: CASE EVENT DATE: 20150302
